FAERS Safety Report 23338063 (Version 10)
Quarter: 2025Q4

REPORT INFORMATION
  Report Type: Report from Study
  Country: CL (occurrence: CL)
  Receive Date: 20231226
  Receipt Date: 20251217
  Transmission Date: 20260119
  Serious: Yes (Other)
  Sender: NOVARTIS
  Company Number: CL-002147023-NVSC2023CL272848

PATIENT
  Age: 69 Year
  Sex: Female

DRUGS (7)
  1. KISQALI [Suspect]
     Active Substance: RIBOCICLIB SUCCINATE
     Indication: Breast cancer
     Dosage: 600 MG, QD
     Route: 048
     Dates: start: 20231107
  2. KISQALI [Suspect]
     Active Substance: RIBOCICLIB SUCCINATE
     Dosage: 3 DOSAGE FORM (3 TABLETS)
     Route: 048
     Dates: start: 20240103
  3. KISQALI [Suspect]
     Active Substance: RIBOCICLIB SUCCINATE
     Dosage: 3 DOSAGE FORM (3 TABLETS)
     Route: 065
     Dates: start: 20240402
  4. KISQALI [Suspect]
     Active Substance: RIBOCICLIB SUCCINATE
     Dosage: 3 DOSAGE FORM (3 TABLETS)
     Route: 065
     Dates: start: 20240507
  5. KISQALI [Suspect]
     Active Substance: RIBOCICLIB SUCCINATE
     Dosage: 600 MG, QD (3 UNITS)
     Route: 048
     Dates: start: 20240730
  6. KISQALI [Suspect]
     Active Substance: RIBOCICLIB SUCCINATE
     Dosage: 600 MG, QD
     Route: 048
  7. ZOMETA [Suspect]
     Active Substance: ZOLEDRONIC ACID
     Indication: Product used for unknown indication
     Dosage: UNK
     Route: 065

REACTIONS (16)
  - Gastritis [Unknown]
  - Gastritis bacterial [Unknown]
  - Gastric ulcer [Unknown]
  - Hepatitis [Unknown]
  - Abdominal discomfort [Unknown]
  - Visual impairment [Unknown]
  - Illness [Unknown]
  - Seasonal allergy [Not Recovered/Not Resolved]
  - Nasopharyngitis [Not Recovered/Not Resolved]
  - Cough [Not Recovered/Not Resolved]
  - Musculoskeletal chest pain [Unknown]
  - Malaise [Unknown]
  - Corneal disorder [Unknown]
  - Myopia [Unknown]
  - Diabetic retinopathy [Unknown]
  - Throat clearing [Unknown]
